FAERS Safety Report 4633738-1 (Version None)
Quarter: 2005Q2

REPORT INFORMATION
  Report Type: 
  Country: None (occurrence: None)
  Receive Date: 20050325
  Receipt Date: 20041214
  Transmission Date: 20051028
  Serious: No
  Sender: FDA-Public Use
  Company Number: USA041286151

PATIENT
  Age: 42 Year
  Sex: Male
  Weight: 63 kg

DRUGS (5)
  1. FORTEO [Suspect]
     Indication: OSTEOPOROSIS
     Dosage: 20 UG/1 DAY
     Dates: start: 20040801
  2. EVISTA [Suspect]
     Indication: OSTEOPOROSIS
     Dosage: 60 MG/1DAY
     Dates: start: 20040801
  3. CITRACAL + D [Concomitant]
  4. MULTI-VITAMINS [Concomitant]
  5. VITAMIN B COMPLEX CAP [Concomitant]

REACTIONS (7)
  - ABDOMINAL PAIN UPPER [None]
  - COUGH [None]
  - DRUG INEFFECTIVE [None]
  - FATIGUE [None]
  - FEELING ABNORMAL [None]
  - MUSCLE SPASMS [None]
  - RHINORRHOEA [None]
